FAERS Safety Report 8105070-5 (Version None)
Quarter: 2012Q1

REPORT INFORMATION
  Report Type: 
  Country: None (occurrence: None)
  Receive Date: 20120201
  Receipt Date: 20120123
  Transmission Date: 20120608
  Serious: Yes (Hospitalization)
  Sender: FDA-Public Use
  Company Number: US-BAYER-2011-042762

PATIENT
  Age: 18 Year
  Sex: Female
  Weight: 56.689 kg

DRUGS (9)
  1. IBUPROFEN (ADVIL) [Concomitant]
  2. HYDROCHLOROTHIAZIDE [Concomitant]
     Dosage: UNK
     Dates: start: 20030801, end: 20051201
  3. CELEBREX [Concomitant]
     Dosage: UNK
     Dates: start: 20040502
  4. YASMIN [Suspect]
     Indication: CONTRACEPTION
     Dosage: UNK
     Dates: start: 20031221, end: 20031227
  5. DIURETICS [Concomitant]
  6. COREG [Concomitant]
  7. PERCOCET [Concomitant]
     Dosage: UNK
     Dates: start: 20040104
  8. LISINOPRIL [Concomitant]
  9. ORTHO TRI-CYCLEN LO [Concomitant]
     Indication: CONTRACEPTION
     Dosage: UNK
     Dates: start: 20020901, end: 20031201

REACTIONS (10)
  - ABNORMAL WEIGHT GAIN [None]
  - ANXIETY [None]
  - TACHYCARDIA [None]
  - ANHEDONIA [None]
  - DYSPNOEA [None]
  - PSYCHOLOGICAL TRAUMA [None]
  - DEEP VEIN THROMBOSIS [None]
  - PAIN IN EXTREMITY [None]
  - OEDEMA PERIPHERAL [None]
  - PULMONARY EMBOLISM [None]
